FAERS Safety Report 11786185 (Version 2)
Quarter: 2015Q4

REPORT INFORMATION
  Report Type: Spontaneous
  Country: FR (occurrence: FR)
  Receive Date: 20151130
  Receipt Date: 20151211
  Transmission Date: 20160305
  Serious: Yes (Hospitalization)
  Sender: FDA-Public Use
  Company Number: FR-MERZ NORTH AMERICA, INC.-15MRZ-00658

PATIENT
  Age: 42 Year
  Sex: Male

DRUGS (2)
  1. ASCLERA [Suspect]
     Active Substance: POLIDOCANOL
     Indication: VARICOSE VEIN
     Route: 042
     Dates: start: 20151029, end: 20151029
  2. LEVOTHYROX [Concomitant]
     Active Substance: LEVOTHYROXINE

REACTIONS (5)
  - Tachycardia [Unknown]
  - Pulmonary embolism [Unknown]
  - Dyspnoea [Unknown]
  - Chest pain [Unknown]
  - Sense of oppression [Unknown]

NARRATIVE: CASE EVENT DATE: 20151101
